FAERS Safety Report 17535422 (Version 1)
Quarter: 2020Q1

REPORT INFORMATION
  Report Type: Spontaneous
  Country: GB (occurrence: GB)
  Receive Date: 20200312
  Receipt Date: 20200312
  Transmission Date: 20200409
  Serious: Yes (Hospitalization)
  Sender: FDA-Public Use
  Company Number: GB-EMD SERONO-9150147

PATIENT
  Sex: Female

DRUGS (1)
  1. REBIF [Suspect]
     Active Substance: INTERFERON BETA-1A
     Indication: MULTIPLE SCLEROSIS
     Dosage: REBIF 44MICROGRAMS/0.5ML (12MILLION UNITS) SOLUTION FOR INJECTION 1.5ML CARTRIDGES.
     Route: 058

REACTIONS (3)
  - Treatment noncompliance [Unknown]
  - Myocardial infarction [Unknown]
  - Device issue [Unknown]

NARRATIVE: CASE EVENT DATE: 2020
